FAERS Safety Report 11359421 (Version 1)
Quarter: 2015Q3

REPORT INFORMATION
  Report Type: Spontaneous
  Country: DE (occurrence: DE)
  Receive Date: 20150807
  Receipt Date: 20150807
  Transmission Date: 20151125
  Serious: Yes (Other)
  Sender: FDA-Public Use
  Company Number: DE-AMEDRA PHARMACEUTICALS LLC-2015AMD00156

PATIENT

DRUGS (1)
  1. EPINEPHRINE. [Suspect]
     Active Substance: EPINEPHRINE

REACTIONS (3)
  - Pulmonary interstitial emphysema syndrome [Unknown]
  - Pneumopericardium [Unknown]
  - Pneumothorax [Unknown]
